FAERS Safety Report 12577822 (Version 1)
Quarter: 2016Q3

REPORT INFORMATION
  Report Type: Spontaneous
  Country: US (occurrence: None)
  Receive Date: 20160720
  Receipt Date: 20160720
  Transmission Date: 20161109
  Serious: No
  Sender: FDA-Public Use
  Company Number: None

PATIENT
  Sex: Female

DRUGS (1)
  1. HUMALOG MIX75/25 KWIKPEN [Suspect]
     Active Substance: INSULIN LISPRO
     Dosage: 25U BEFORE BRASKF
     Route: 058

REACTIONS (3)
  - Therapy non-responder [None]
  - Blood glucose increased [None]
  - Product physical consistency issue [None]
